FAERS Safety Report 9127250 (Version 1)
Quarter: 2013Q1

REPORT INFORMATION
  Report Type: Spontaneous
  Country: US (occurrence: US)
  Receive Date: 20130228
  Receipt Date: 20130228
  Transmission Date: 20140127
  Serious: No
  Sender: FDA-Public Use
  Company Number: US-MYLANLABS-2012S1019291

PATIENT
  Age: 66 Year
  Sex: Female

DRUGS (9)
  1. METFORMIN HYDROCHLORIDE [Suspect]
     Indication: TYPE 2 DIABETES MELLITUS
     Dosage: 1000MG QAM, 500MG HS
     Route: 048
     Dates: start: 2008, end: 20120915
  2. METFORMIN HYDROCHLORIDE [Suspect]
     Indication: TYPE 2 DIABETES MELLITUS
     Route: 048
     Dates: start: 2008, end: 20120915
  3. CRESTOR [Concomitant]
     Indication: BLOOD CHOLESTEROL INCREASED
     Route: 048
  4. PLAVIX [Concomitant]
     Route: 048
  5. LASIX [Concomitant]
     Indication: FLUID RETENTION
  6. IBUPROFEN [Concomitant]
     Indication: PAIN
     Route: 048
  7. SPIRIVA [Concomitant]
  8. MEDROL /00049607/ [Concomitant]
  9. FIORICET [Concomitant]

REACTIONS (7)
  - Lactic acidosis [Recovered/Resolved]
  - Migraine [Recovered/Resolved]
  - Headache [Recovered/Resolved]
  - Pain in extremity [Not Recovered/Not Resolved]
  - Abdominal pain upper [Not Recovered/Not Resolved]
  - Chills [Not Recovered/Not Resolved]
  - Muscular weakness [Not Recovered/Not Resolved]
